FAERS Safety Report 11444665 (Version 1)
Quarter: 2015Q3

REPORT INFORMATION
  Report Type: Report from Study
  Country: US (occurrence: None)
  Receive Date: 20150831
  Receipt Date: 20150831
  Transmission Date: 20151125
  Serious: Yes (Other)
  Sender: FDA-Public Use
  Company Number: KAD201508-002892

PATIENT
  Age: 57 Year
  Sex: Male
  Weight: 82.19 kg

DRUGS (8)
  1. RIBAVIRIN (RIBAVIRIN) [Suspect]
     Active Substance: RIBAVIRIN
     Dates: start: 20150610
  2. BUPROPION XL [Concomitant]
     Active Substance: BUPROPION
  3. PROPANOLOL [Concomitant]
     Active Substance: PROPRANOLOL HYDROCHLORIDE
  4. METHYLPHENIDATE (METHYLPHENIDATE) [Concomitant]
     Active Substance: METHYLPHENIDATE
  5. SAPHRIS (ASENAPINE MALEATE) [Concomitant]
  6. FLUOXETINE [Suspect]
     Active Substance: FLUOXETINE\FLUOXETINE HYDROCHLORIDE
  7. VIEKIRA PAK [Suspect]
     Active Substance: DASABUVIR\OMBITASVIR\PARITAPREVIR\RITONAVIR
     Dosage: TWO PINK TABLETS WITH ONE BEIGE IN AM, ONE BEIGE IN PM, TWO IN ONE DAY, ORAL
     Dates: start: 20150610
  8. NITROFURANTOIN. [Concomitant]
     Active Substance: NITROFURANTOIN

REACTIONS (15)
  - Orthostatic hypotension [None]
  - Anaemia [None]
  - Rash [None]
  - Dysphonia [None]
  - Fatigue [None]
  - Mood altered [None]
  - Dry mouth [None]
  - Pallor [None]
  - Dry skin [None]
  - Daydreaming [None]
  - Weight decreased [None]
  - Dyspnoea [None]
  - Yellow skin [None]
  - Depression [None]
  - Nausea [None]

NARRATIVE: CASE EVENT DATE: 20150818
